FAERS Safety Report 24713715 (Version 1)
Quarter: 2024Q4

REPORT INFORMATION
  Report Type: Spontaneous
  Country: US (occurrence: US)
  Receive Date: 20241209
  Receipt Date: 20241209
  Transmission Date: 20250114
  Serious: No
  Sender: REGENERON
  Company Number: US-REGENERON PHARMACEUTICALS, INC.-2024-052485

PATIENT
  Age: 65 Year
  Sex: Female

DRUGS (11)
  1. EYLEA [Suspect]
     Active Substance: AFLIBERCEPT
     Indication: Diabetic retinal oedema
     Dosage: 2 MG, Q4W, LEFT EYE; FORMULATION: 2 MG UNKNOWN
     Route: 031
     Dates: start: 20230727, end: 20230727
  2. EYLEA [Suspect]
     Active Substance: AFLIBERCEPT
     Indication: Diabetic retinopathy
     Dosage: 2 MG, Q4W, LEFT EYE, FORMULATION: 2 MG UNKNOWN
     Route: 031
     Dates: start: 20230824, end: 20230824
  3. EYLEA [Suspect]
     Active Substance: AFLIBERCEPT
     Dosage: 2 MG, Q4W, LEFT EYE; FORMULATION: 2 MG UNKNOWN
     Route: 031
     Dates: start: 20230921, end: 20230921
  4. EYLEA [Suspect]
     Active Substance: AFLIBERCEPT
     Dosage: 2 MG, Q8W, LEFT EYE; FORMULATION: 2 MG UNKNOWN
     Route: 031
     Dates: start: 20231116, end: 20231116
  5. EYLEA [Suspect]
     Active Substance: AFLIBERCEPT
     Dosage: 2 MG, Q4W, LEFT EYE; FORMULATION: 2 MG UNKNOWN
     Route: 031
     Dates: start: 20240118, end: 20240118
  6. EYLEA [Suspect]
     Active Substance: AFLIBERCEPT
     Dosage: 2 MG, Q4W, LEFT EYE; FORMULATION: 2 MG UNKNOWN
     Route: 031
     Dates: start: 20240222, end: 20240222
  7. EYLEA [Suspect]
     Active Substance: AFLIBERCEPT
     Dosage: 2 MG, Q4W, LEFT EYE; FORMULATION: 2 MG UNKNOWN
     Route: 031
     Dates: start: 20240321, end: 20240321
  8. EYLEA [Suspect]
     Active Substance: AFLIBERCEPT
     Dosage: 2 MG, Q4W, LEFT EYE; FORMULATION: 2 MG UNKNOWN
     Route: 031
     Dates: start: 20240418, end: 20240418
  9. FARICIMAB [Concomitant]
     Active Substance: FARICIMAB
     Indication: Diabetic retinal oedema
     Dosage: UNK, Q6WEEKS
     Dates: start: 2023, end: 2023
  10. FARICIMAB [Concomitant]
     Active Substance: FARICIMAB
     Indication: Diabetic retinopathy
     Dosage: UNK, MONTHLY
     Dates: start: 2023, end: 2023
  11. FARICIMAB [Concomitant]
     Active Substance: FARICIMAB
     Dosage: UNK, 7 WEEKS
     Dates: start: 2023, end: 2023

REACTIONS (5)
  - Diabetic retinal oedema [Unknown]
  - Diabetic retinopathy [Unknown]
  - Condition aggravated [Unknown]
  - Visual impairment [Unknown]
  - Therapeutic response shortened [Unknown]
